FAERS Safety Report 25256711 (Version 2)
Quarter: 2025Q2

REPORT INFORMATION
  Report Type: Spontaneous
  Country: IT (occurrence: None)
  Receive Date: 20250430
  Receipt Date: 20250508
  Transmission Date: 20250716
  Serious: Yes (Other)
  Sender: ACS DOBFAR
  Company Number: IT-ACS-20250238

PATIENT
  Age: 79 Year
  Sex: Female

DRUGS (1)
  1. CEFUROXIME [Suspect]
     Active Substance: CEFUROXIME
     Indication: Antibiotic prophylaxis
     Route: 031

REACTIONS (2)
  - Retinal detachment [Not Recovered/Not Resolved]
  - Off label use [Unknown]
